FAERS Safety Report 7462777-0 (Version None)
Quarter: 2011Q1

REPORT INFORMATION
  Report Type: 
  Country: None (occurrence: None)
  Receive Date: 20110302
  Receipt Date: 20100713
  Transmission Date: 20110831
  Serious: Yes (Other)
  Sender: FDA-Public Use
  Company Number: 163-21880-10031402

PATIENT
  Age: 84 Year
  Sex: Male

DRUGS (3)
  1. REVLIMID [Suspect]
     Indication: MYELODYSPLASTIC SYNDROME
     Dosage: 5 MG, 1 IN 1 D, PO, 10-5MG, DAILY, PO, THREE TIMES A WEEK, PO
     Route: 048
     Dates: start: 20100601
  2. REVLIMID [Suspect]
     Indication: MYELODYSPLASTIC SYNDROME
     Dosage: 5 MG, 1 IN 1 D, PO, 10-5MG, DAILY, PO, THREE TIMES A WEEK, PO
     Route: 048
     Dates: start: 20070901
  3. REVLIMID [Suspect]
     Indication: MYELODYSPLASTIC SYNDROME
     Dosage: 5 MG, 1 IN 1 D, PO, 10-5MG, DAILY, PO, THREE TIMES A WEEK, PO
     Route: 048
     Dates: start: 20090901

REACTIONS (3)
  - ADVERSE DRUG REACTION [None]
  - WHITE BLOOD CELL COUNT DECREASED [None]
  - HAEMOGLOBIN DECREASED [None]
